FAERS Safety Report 6698891-7 (Version None)
Quarter: 2010Q2

REPORT INFORMATION
  Report Type: 
  Country: None (occurrence: None)
  Receive Date: 20100427
  Receipt Date: 20100422
  Transmission Date: 20101027
  Serious: Yes (Hospitalization)
  Sender: FDA-Public Use
  Company Number: FR-MERCK-0911FRA00028

PATIENT
  Age: 65 Year
  Sex: Female
  Weight: 103 kg

DRUGS (8)
  1. JANUVIA [Suspect]
     Indication: TYPE 2 DIABETES MELLITUS
     Route: 048
     Dates: start: 20090310, end: 20090317
  2. METFORMIN HYDROCHLORIDE [Suspect]
     Indication: TYPE 2 DIABETES MELLITUS
     Route: 048
     Dates: start: 20090324
  3. PERINDOPRIL ARGININE [Suspect]
     Indication: HYPERTENSION
     Route: 048
  4. HYDROCHLOROTHIAZIDE [Suspect]
     Route: 048
  5. GLICLAZIDE [Suspect]
     Indication: TYPE 2 DIABETES MELLITUS
     Route: 048
     Dates: start: 20090317
  6. ATORVASTATIN CALCIUM [Concomitant]
     Route: 065
  7. FERROUS SULFATE [Concomitant]
     Route: 065
  8. BISOPROLOL FUMARATE [Concomitant]
     Route: 065

REACTIONS (5)
  - ANURIA [None]
  - DIARRHOEA [None]
  - DYSPEPSIA [None]
  - HYPERKALAEMIA [None]
  - RENAL FAILURE ACUTE [None]
